FAERS Safety Report 6522659-5 (Version None)
Quarter: 2009Q4

REPORT INFORMATION
  Report Type: 
  Country: None (occurrence: None)
  Receive Date: 20091214
  Receipt Date: 20090820
  Transmission Date: 20100525
  Serious: Yes (Other)
  Sender: FDA-Public Use
  Company Number: 652166

PATIENT
  Age: 53 Year
  Sex: Male

DRUGS (2)
  1. PEGASYS [Suspect]
     Indication: HEPATITIS C
     Dosage: 180 UG 1 PER 1 WEEK
     Dates: start: 20090501
  2. RIBASPHERE [Suspect]
     Indication: HEPATITIS C
     Dosage: 1200 MG DAILY
     Dates: start: 20090501, end: 20090508

REACTIONS (3)
  - COUGH [None]
  - DRUG INEFFECTIVE [None]
  - HEPATIC CIRRHOSIS [None]
